FAERS Safety Report 10264290 (Version 1)
Quarter: 2014Q2

REPORT INFORMATION
  Report Type: Spontaneous
  Country: US (occurrence: US)
  Receive Date: 20140627
  Receipt Date: 20140627
  Transmission Date: 20141212
  Serious: No
  Sender: FDA-Public Use
  Company Number: US-TEVA-455347USA

PATIENT
  Sex: Female

DRUGS (1)
  1. PROPRANOLOL [Suspect]
     Indication: AUTONOMIC NERVOUS SYSTEM IMBALANCE

REACTIONS (4)
  - Heart rate increased [Unknown]
  - Nervousness [Unknown]
  - Drug ineffective [Unknown]
  - Product quality issue [Unknown]
